FAERS Safety Report 10258397 (Version 1)
Quarter: 2014Q2

REPORT INFORMATION
  Report Type: Spontaneous
  Country: MX (occurrence: MX)
  Receive Date: 20140625
  Receipt Date: 20140625
  Transmission Date: 20141212
  Serious: Yes (Hospitalization)
  Sender: FDA-Public Use
  Company Number: MX-B.I. PHARMACEUTICALS,INC./RIDGEFIELD-2014-BI-28228MX

PATIENT
  Age: 80 Year
  Sex: Male

DRUGS (5)
  1. PRADAXAR [Suspect]
     Indication: ATRIAL FIBRILLATION
     Dosage: 110 MG
     Route: 048
     Dates: start: 201404, end: 201404
  2. NORFENON [Concomitant]
     Indication: DIURETIC THERAPY
     Route: 065
  3. NORFENON [Concomitant]
     Indication: CARDIAC FAILURE
  4. FUROSEMIDE [Concomitant]
     Indication: DIURETIC THERAPY
     Route: 065
  5. FUROSEMIDE [Concomitant]
     Indication: CARDIAC FAILURE

REACTIONS (4)
  - Diverticulum [Not Recovered/Not Resolved]
  - Anaemia [Recovered/Resolved]
  - Platelet count decreased [Recovered/Resolved]
  - Rectal haemorrhage [Recovered/Resolved]
